FAERS Safety Report 6745040-2 (Version None)
Quarter: 2010Q2

REPORT INFORMATION
  Report Type: 
  Country: None (occurrence: None)
  Receive Date: 20100527
  Receipt Date: 20100517
  Transmission Date: 20101027
  Serious: Yes (Death, Other)
  Sender: FDA-Public Use
  Company Number: US-WATSON-2010-06794

PATIENT
  Age: 48 Year
  Sex: Male

DRUGS (4)
  1. CHLORDIAZEPOXIDE HCL [Suspect]
     Indication: ACCIDENTAL OVERDOSE
     Dosage: UNK
     Route: 048
  2. FLUOXETINE [Suspect]
     Indication: ACCIDENTAL OVERDOSE
     Route: 048
  3. OXYMORPHONE [Suspect]
     Indication: ACCIDENTAL OVERDOSE
     Route: 048
  4. ALCOHOL                            /00002101/ [Suspect]
     Indication: ACCIDENTAL OVERDOSE

REACTIONS (1)
  - POISONING [None]
